FAERS Safety Report 4839020-1 (Version None)
Quarter: 2005Q4

REPORT INFORMATION
  Report Type: 
  Country: None (occurrence: None)
  Receive Date: 20051024
  Receipt Date: 20050720
  Transmission Date: 20060501
  Serious: Yes (Other)
  Sender: FDA-Public Use
  Company Number: 2005105145

PATIENT
  Age: 52 Year
  Sex: Female
  Weight: 71.6683 kg

DRUGS (9)
  1. RELPAX [Suspect]
     Indication: MIGRAINE
     Dosage: 40 MG (40 MG, 1 IN 1 AS NECESSARY), ORAL
     Route: 048
     Dates: start: 20020101
  2. ACIPHEX [Concomitant]
  3. WELLBUTRIN [Concomitant]
  4. AMBIEN [Concomitant]
  5. LOPID [Concomitant]
  6. PRAVACHOL [Concomitant]
  7. XANAX [Concomitant]
  8. ESGIC (BUTALBITAL, CAFFEINE, PARACETAMOL) [Concomitant]
  9. PHENERGAN ^AVENTIS PHARMA^ (PROMETHAZINE HYDROCHLORIDE) [Concomitant]

REACTIONS (3)
  - GLOSSODYNIA [None]
  - ORAL DISCOMFORT [None]
  - THROAT IRRITATION [None]
